FAERS Safety Report 12767651 (Version 1)
Quarter: 2016Q3

REPORT INFORMATION
  Report Type: Spontaneous
  Country: US (occurrence: US)
  Receive Date: 20160921
  Receipt Date: 20160921
  Transmission Date: 20161109
  Serious: Yes (Hospitalization)
  Sender: FDA-Public Use
  Company Number: US-ASTRAZENECA-2016SE97905

PATIENT
  Age: 56 Year
  Sex: Female
  Weight: 34 kg

DRUGS (2)
  1. Z-PACK [Concomitant]
     Active Substance: AZITHROMYCIN DIHYDRATE
     Indication: ANTIBIOTIC THERAPY
     Route: 048
     Dates: start: 20160908, end: 20160912
  2. SYMBICORT [Suspect]
     Active Substance: BUDESONIDE\FORMOTEROL FUMARATE DIHYDRATE
     Indication: CHRONIC OBSTRUCTIVE PULMONARY DISEASE
     Dosage: 160/4.5, FREQUENCY, 2 PUFFS, TWICE DAILY
     Route: 055
     Dates: start: 2013

REACTIONS (4)
  - Intentional product use issue [Unknown]
  - Intentional product misuse [Unknown]
  - Alpha-1 anti-trypsin decreased [Not Recovered/Not Resolved]
  - Pneumonia [Recovering/Resolving]

NARRATIVE: CASE EVENT DATE: 2014
